FAERS Safety Report 25167459 (Version 1)
Quarter: 2025Q2

REPORT INFORMATION
  Report Type: Spontaneous
  Country: US (occurrence: None)
  Receive Date: 20250405
  Receipt Date: 20250405
  Transmission Date: 20250717
  Serious: Yes (Hospitalization)
  Sender: FDA-CTU
  Company Number: None

PATIENT
  Age: 62 Year
  Sex: Male
  Weight: 94.5 kg

DRUGS (1)
  1. PEMBROLIZUMAB [Suspect]
     Active Substance: PEMBROLIZUMAB

REACTIONS (8)
  - Hyponatraemia [None]
  - Metabolic acidosis [None]
  - Euglycaemic diabetic ketoacidosis [None]
  - Oedema peripheral [None]
  - Dysphagia [None]
  - Starvation ketoacidosis [None]
  - Blood ketone body [None]
  - Acidosis [None]

NARRATIVE: CASE EVENT DATE: 20250318
